FAERS Safety Report 12128258 (Version 2)
Quarter: 2016Q1

REPORT INFORMATION
  Report Type: Report from Study
  Country: JP (occurrence: JP)
  Receive Date: 20160229
  Receipt Date: 20160301
  Transmission Date: 20160526
  Serious: Yes (Other)
  Sender: FDA-Public Use
  Company Number: JP-ALLERGAN-1635971US

PATIENT
  Age: 46 Year
  Sex: Male

DRUGS (1)
  1. BRIMONIDINE [Suspect]
     Active Substance: BRIMONIDINE TARTRATE
     Indication: NORMAL TENSION GLAUCOMA
     Dosage: 2 GTT, UNK
     Route: 047
     Dates: start: 20130918

REACTIONS (3)
  - Intestinal obstruction [Recovered/Resolved]
  - Ocular hyperaemia [Recovered/Resolved]
  - Crohn^s disease [Recovered/Resolved]
